FAERS Safety Report 20893931 (Version 1)
Quarter: 2022Q2

REPORT INFORMATION
  Report Type: Spontaneous
  Country: US (occurrence: None)
  Receive Date: 20220528
  Receipt Date: 20220528
  Transmission Date: 20220721
  Serious: No
  Sender: FDA-Public Use
  Company Number: None

PATIENT
  Age: 56 Year
  Sex: Female
  Weight: 52.2 kg

DRUGS (5)
  1. PAXLOVID [Suspect]
     Active Substance: NIRMATRELVIR\RITONAVIR
     Indication: COVID-19
     Dosage: FREQUENCY : TWICE A DAY;?
     Route: 048
     Dates: start: 20220515, end: 20220519
  2. CALCIUM [Concomitant]
     Active Substance: CALCIUM
  3. Flax Oil [Concomitant]
  4. Omega [Concomitant]
  5. VITAMINS [Concomitant]
     Active Substance: VITAMINS

REACTIONS (7)
  - Malaise [None]
  - Symptom recurrence [None]
  - Rebound effect [None]
  - SARS-CoV-2 test positive [None]
  - Adverse drug reaction [None]
  - Product complaint [None]
  - Condition aggravated [None]

NARRATIVE: CASE EVENT DATE: 20220523
